FAERS Safety Report 25610203 (Version 1)
Quarter: 2025Q3

REPORT INFORMATION
  Report Type: Spontaneous
  Country: US (occurrence: US)
  Receive Date: 20250728
  Receipt Date: 20250728
  Transmission Date: 20251020
  Serious: No
  Sender: SAREPTA THERAPEUTICS
  Company Number: US-SAREPTA THERAPEUTICS INC.-SRP2025-005586

PATIENT
  Age: 21 Year
  Sex: Male

DRUGS (1)
  1. AMONDYS 45 [Suspect]
     Active Substance: CASIMERSEN
     Indication: Product used for unknown indication
     Route: 042

REACTIONS (3)
  - Malaise [Unknown]
  - Poor quality sleep [Unknown]
  - Sinus congestion [Unknown]

NARRATIVE: CASE EVENT DATE: 20250101
